FAERS Safety Report 5487907-1 (Version None)
Quarter: 2007Q4

REPORT INFORMATION
  Report Type: 
  Country: None (occurrence: None)
  Receive Date: 20071012
  Receipt Date: 20071012
  Transmission Date: 20080405
  Serious: Yes (Other)
  Sender: FDA-Public Use
  Company Number: None

PATIENT
  Age: 29 Year
  Sex: Female
  Weight: 72.5755 kg

DRUGS (1)
  1. YASMIN [Suspect]
     Indication: ORAL CONTRACEPTION
     Dosage: LOWEST DOSE DAILY/MONTHLY PO
     Route: 048
     Dates: start: 20070310, end: 20070910

REACTIONS (8)
  - DEPRESSION [None]
  - FATIGUE [None]
  - FEELING OF DESPAIR [None]
  - HEADACHE [None]
  - LYMPHADENOPATHY [None]
  - NAUSEA [None]
  - VERTIGO [None]
  - VOMITING [None]
